FAERS Safety Report 25122922 (Version 3)
Quarter: 2025Q2

REPORT INFORMATION
  Report Type: Spontaneous
  Country: JP (occurrence: JP)
  Receive Date: 20250326
  Receipt Date: 20250403
  Transmission Date: 20250717
  Serious: Yes (Other)
  Sender: NOVARTIS
  Company Number: JP-002147023-NVSJ2025JP003513

PATIENT
  Age: 30 Year
  Sex: Female

DRUGS (1)
  1. CYCLOSPORINE [Suspect]
     Active Substance: CYCLOSPORINE
     Indication: Allogenic bone marrow transplantation therapy
     Route: 048

REACTIONS (5)
  - Basal cell carcinoma [Recovering/Resolving]
  - Macule [Unknown]
  - Skin erosion [Unknown]
  - Haemorrhage [Unknown]
  - Skin mass [Unknown]
